FAERS Safety Report 23390653 (Version 2)
Quarter: 2024Q1

REPORT INFORMATION
  Report Type: Spontaneous
  Country: US (occurrence: US)
  Receive Date: 20240111
  Receipt Date: 20240115
  Transmission Date: 20240409
  Serious: Yes (Disabling, Other)
  Sender: FDA-Public Use
  Company Number: US-TEVA-VS-3134920

PATIENT
  Age: 39 Year

DRUGS (3)
  1. COPAXONE [Suspect]
     Active Substance: GLATIRAMER ACETATE
     Indication: Multiple sclerosis
     Dosage: TIME INTERVAL: 0.33333333 WEEKS: STARTED COPAXONE BETWEEN 1999 AND 2008
     Route: 065
  2. LEVOTHYROXINE [Concomitant]
     Active Substance: LEVOTHYROXINE
     Indication: Thyroiditis
  3. AMANTADINE [Concomitant]
     Active Substance: AMANTADINE
     Indication: Fatigue

REACTIONS (6)
  - Disability [Unknown]
  - Muscular weakness [Unknown]
  - Body height decreased [Unknown]
  - Tooth abscess [Recovered/Resolved]
  - Multiple sclerosis relapse [Recovered/Resolved]
  - Insomnia [Recovered/Resolved]

NARRATIVE: CASE EVENT DATE: 20020101
